FAERS Safety Report 9518155 (Version 1)
Quarter: 2013Q3

REPORT INFORMATION
  Report Type: Spontaneous
  Country: US (occurrence: None)
  Receive Date: 20130910
  Receipt Date: 20130910
  Transmission Date: 20140515
  Serious: No
  Sender: FDA-Public Use
  Company Number: None

PATIENT
  Age: 49 Year
  Sex: Female
  Weight: 63.5 kg

DRUGS (2)
  1. EXCEDRIN EXTRA STRENGTH [Suspect]
     Indication: HEADACHE
     Dates: start: 20130901, end: 20130907
  2. ONE A DAY MULTIVITAMIN [Concomitant]

REACTIONS (3)
  - Feeling abnormal [None]
  - Dizziness [None]
  - Product quality issue [None]
